FAERS Safety Report 5399938-0 (Version None)
Quarter: 2007Q3

REPORT INFORMATION
  Report Type: 
  Country: None (occurrence: None)
  Receive Date: 20070726
  Receipt Date: 20070726
  Transmission Date: 20080115
  Serious: Yes (Life-Threatening, Hospitalization, Disabling)
  Sender: FDA-Public Use
  Company Number: None

PATIENT
  Age: 68 Year
  Sex: Female
  Weight: 79.3795 kg

DRUGS (1)
  1. AVANDIA [Suspect]
     Indication: DIABETES MELLITUS
     Dosage: 4 MG 2 X DAILY ORAL
     Route: 048
     Dates: start: 20040518, end: 20061007

REACTIONS (1)
  - CARDIAC FAILURE CONGESTIVE [None]
